FAERS Safety Report 5366938-6 (Version None)
Quarter: 2007Q2

REPORT INFORMATION
  Report Type: 
  Country: None (occurrence: None)
  Receive Date: 20070622
  Receipt Date: 20070314
  Transmission Date: 20071010
  Serious: No
  Sender: FDA-Public Use
  Company Number: US-ASTRAZENECA-2007UW04865

PATIENT
  Age: 44 Year
  Sex: Female
  Weight: 77.1 kg

DRUGS (1)
  1. RHINOCORT [Suspect]
     Indication: MULTIPLE ALLERGIES
     Route: 045

REACTIONS (2)
  - PAIN IN EXTREMITY [None]
  - SKIN LACERATION [None]
